FAERS Safety Report 16580898 (Version 2)
Quarter: 2019Q3

REPORT INFORMATION
  Report Type: Report from Study
  Country: TH (occurrence: TH)
  Receive Date: 20190716
  Receipt Date: 20190807
  Transmission Date: 20191004
  Serious: Yes (Death, Hospitalization, Other)
  Sender: FDA-Public Use
  Company Number: TH-TAKEDA-2019TUS043687

PATIENT
  Age: 62 Year
  Sex: Male

DRUGS (3)
  1. BORTEZOMIB. [Suspect]
     Active Substance: BORTEZOMIB
     Indication: PLASMA CELL MYELOMA RECURRENT
     Dosage: 2.3 MILLIGRAM, QD
     Route: 065
     Dates: start: 20190614, end: 20190628
  2. DARZALEX [Suspect]
     Active Substance: DARATUMUMAB
     Indication: PLASMA CELL MYELOMA RECURRENT
     Dosage: 1000 MILLIGRAM, QD
     Route: 065
     Dates: start: 20190614, end: 20190628
  3. DARZALEX [Suspect]
     Active Substance: DARATUMUMAB
     Dosage: UNK
     Route: 065

REACTIONS (4)
  - Pain [Recovering/Resolving]
  - Frequent bowel movements [Recovering/Resolving]
  - Sepsis [Fatal]
  - Hypotension [Recovering/Resolving]

NARRATIVE: CASE EVENT DATE: 20190628
